FAERS Safety Report 4434330-4 (Version None)
Quarter: 2004Q3

REPORT INFORMATION
  Report Type: 
  Country: None (occurrence: None)
  Receive Date: 20040826
  Receipt Date: 20020513
  Transmission Date: 20050211
  Serious: Yes (Hospitalization, Other)
  Sender: FDA-Public Use
  Company Number: US-MERCK-0205USA01618

PATIENT
  Age: 59 Year
  Sex: Female
  Weight: 100 kg

DRUGS (6)
  1. ALBUTEROL [Concomitant]
     Route: 065
  2. NITROGLYCERIN [Concomitant]
     Route: 065
  3. VIOXX [Suspect]
     Indication: ARTHRITIS
     Route: 048
     Dates: start: 20000101
  4. VIOXX [Suspect]
     Route: 048
     Dates: start: 20010412
  5. TOLINASE [Concomitant]
     Indication: DIABETES MELLITUS
     Route: 065
  6. VERAPAMIL [Concomitant]
     Indication: HYPERTENSION
     Route: 065

REACTIONS (30)
  - BLOOD GLUCOSE INCREASED [None]
  - CARDIAC FAILURE [None]
  - CARDIOMEGALY [None]
  - CEREBROVASCULAR ACCIDENT [None]
  - CHEST PAIN [None]
  - CHRONIC OBSTRUCTIVE AIRWAYS DISEASE [None]
  - CORONARY ARTERY DISEASE [None]
  - DYSPEPSIA [None]
  - DYSPNOEA [None]
  - HYPERHIDROSIS [None]
  - HYPERTENSION [None]
  - INTERVERTEBRAL DISC DISPLACEMENT [None]
  - LIMB DISCOMFORT [None]
  - LUMBAR RADICULOPATHY [None]
  - LYMPHADENITIS [None]
  - MUSCULOSKELETAL CHEST PAIN [None]
  - MYALGIA [None]
  - MYOCARDIAL INFARCTION [None]
  - OEDEMA PERIPHERAL [None]
  - PAIN IN EXTREMITY [None]
  - PALPITATIONS [None]
  - PARONYCHIA [None]
  - PRODUCTIVE COUGH [None]
  - PYREXIA [None]
  - RADICULOPATHY [None]
  - RESPIRATORY TRACT INFECTION [None]
  - SCIATICA [None]
  - THERAPY NON-RESPONDER [None]
  - TREATMENT NONCOMPLIANCE [None]
  - VARICOSE VEIN [None]
